FAERS Safety Report 10401917 (Version 1)
Quarter: 2014Q3

REPORT INFORMATION
  Report Type: Spontaneous
  Country: US (occurrence: None)
  Receive Date: 20140820
  Receipt Date: 20140820
  Transmission Date: 20150326
  Serious: Yes (Hospitalization)
  Sender: FDA-Public Use
  Company Number: None

PATIENT
  Age: 49 Year
  Sex: Female
  Weight: 52 kg

DRUGS (3)
  1. CYCLOPHOSPHAMIDE. [Suspect]
     Active Substance: CYCLOPHOSPHAMIDE
     Dates: end: 20130708
  2. DOXORUBICIN HYDROCHLORIDE. [Suspect]
     Active Substance: DOXORUBICIN HYDROCHLORIDE
     Dates: end: 20130708
  3. TAXOL [Suspect]
     Active Substance: PACLITAXEL
     Dates: end: 20131021

REACTIONS (6)
  - Wheezing [None]
  - Dyspnoea [None]
  - Productive cough [None]
  - Cardiac disorder [None]
  - Chest pain [None]
  - Troponin increased [None]

NARRATIVE: CASE EVENT DATE: 20140804
